FAERS Safety Report 12876075 (Version 1)
Quarter: 2016Q4

REPORT INFORMATION
  Report Type: Spontaneous
  Country: US (occurrence: US)
  Receive Date: 20161024
  Receipt Date: 20161024
  Transmission Date: 20170207
  Serious: No
  Sender: FDA-Public Use
  Company Number: US-JAZZ-2016-US-015386

PATIENT
  Sex: Female

DRUGS (20)
  1. XYREM [Suspect]
     Active Substance: SODIUM OXYBATE
     Indication: NARCOLEPSY
     Dosage: 2.25 G, BID
     Route: 048
     Dates: start: 201211, end: 201211
  2. NUVIGIL [Concomitant]
     Active Substance: ARMODAFINIL
  3. VICODIN TUSS [Concomitant]
  4. DICLOFENAC SODIUM. [Concomitant]
     Active Substance: DICLOFENAC SODIUM
  5. BUPROPION. [Concomitant]
     Active Substance: BUPROPION
  6. CLARITIN [Concomitant]
     Active Substance: LORATADINE
  7. LIPITOR [Concomitant]
     Active Substance: ATORVASTATIN CALCIUM
  8. ZETIA [Concomitant]
     Active Substance: EZETIMIBE
  9. XYREM [Suspect]
     Active Substance: SODIUM OXYBATE
     Dosage: DOSE ADJUSTMENT
     Route: 048
     Dates: start: 201211, end: 201606
  10. WELLBUTRIN [Concomitant]
     Active Substance: BUPROPION HYDROCHLORIDE
  11. SERTRALINE [Concomitant]
     Active Substance: SERTRALINE HYDROCHLORIDE
  12. TAMOXIFEN [Concomitant]
     Active Substance: TAMOXIFEN
  13. LISINOPRIL. [Concomitant]
     Active Substance: LISINOPRIL
  14. NEXIUM [Concomitant]
     Active Substance: ESOMEPRAZOLE MAGNESIUM
  15. XANAX [Concomitant]
     Active Substance: ALPRAZOLAM
  16. PRAVASTATIN. [Concomitant]
     Active Substance: PRAVASTATIN
  17. HYDROCODONE/ACETAMINOPHEN [Concomitant]
     Active Substance: ACETAMINOPHEN\HYDROCODONE
  18. XYREM [Suspect]
     Active Substance: SODIUM OXYBATE
     Dosage: 3 G, QD
     Route: 048
     Dates: start: 201606
  19. ZOLPIDEM [Concomitant]
     Active Substance: ZOLPIDEM\ZOLPIDEM TARTRATE
  20. SULFAMETHOXAZOLE AND TRIMETHOPRIM [Concomitant]
     Active Substance: SULFAMETHOXAZOLE\TRIMETHOPRIM

REACTIONS (1)
  - Snoring [Unknown]
